FAERS Safety Report 20826821 (Version 1)
Quarter: 2022Q2

REPORT INFORMATION
  Report Type: Spontaneous
  Country: US (occurrence: None)
  Receive Date: 20220513
  Receipt Date: 20220513
  Transmission Date: 20220721
  Serious: Yes (Other)
  Sender: FDA-Public Use
  Company Number: None

PATIENT
  Age: 40 Year
  Sex: Male
  Weight: 104.4 kg

DRUGS (5)
  1. BUPRENORPHINE HYDROCHLORIDE [Suspect]
     Active Substance: BUPRENORPHINE HYDROCHLORIDE
     Indication: Substance use disorder
     Dosage: OTHER QUANTITY : 2 TABLET(S);?
     Route: 060
  2. HYDROCHLOROTHIAZIDE [Concomitant]
     Active Substance: HYDROCHLOROTHIAZIDE
  3. LISINOPRIL [Concomitant]
  4. SIMETHICONE (DIMETHICONE) [Concomitant]
     Active Substance: DIMETHICONE
  5. DOCUSATE SODIUM [Concomitant]

REACTIONS (7)
  - Chills [None]
  - Hyperhidrosis [None]
  - Pain [None]
  - Feeling abnormal [None]
  - Dysgeusia [None]
  - Tongue discomfort [None]
  - Product substitution issue [None]

NARRATIVE: CASE EVENT DATE: 20220421
